FAERS Safety Report 4939588-0 (Version None)
Quarter: 2006Q1

REPORT INFORMATION
  Report Type: 
  Country: None (occurrence: None)
  Receive Date: 20060310
  Receipt Date: 20060228
  Transmission Date: 20060701
  Serious: Yes (Hospitalization)
  Sender: FDA-Public Use
  Company Number: US-JNJFOC-20060300927

PATIENT
  Age: 50 Year
  Sex: Female

DRUGS (2)
  1. ACETAMINOPHEN [Suspect]
  2. ACETAMINOPHEN [Suspect]
     Dosage: 5.2 TO 6.5 GRAM PER DAY

REACTIONS (2)
  - HEPATITIS TOXIC [None]
  - OVERDOSE [None]
